FAERS Safety Report 6071230-0 (Version None)
Quarter: 2009Q1

REPORT INFORMATION
  Report Type: 
  Country: None (occurrence: None)
  Receive Date: 20090209
  Receipt Date: 20090128
  Transmission Date: 20090719
  Serious: Yes (Hospitalization)
  Sender: FDA-Public Use
  Company Number: SE-ELI_LILLY_AND_COMPANY-SE200901004953

PATIENT
  Sex: Female

DRUGS (13)
  1. CYMBALTA [Suspect]
     Dosage: 60 MG, UNKNOWN
     Route: 048
     Dates: start: 20081001, end: 20081113
  2. WARFARIN SODIUM [Interacting]
     Indication: ATRIAL FIBRILLATION
     Dosage: 2.5 MG, DAILY (1/D)
     Route: 048
     Dates: end: 20081113
  3. LANSOPRAZOLE [Concomitant]
     Dosage: UNK, UNKNOWN
     Route: 065
  4. KALCIPOS-D [Concomitant]
     Dosage: UNK, UNKNOWN
     Route: 065
  5. PRIMPERAN /00041901/ [Concomitant]
     Dosage: UNK, UNKNOWN
     Route: 065
  6. SIMVASTATIN [Concomitant]
     Dosage: UNK, UNKNOWN
     Route: 065
  7. INOLAXOL [Concomitant]
     Dosage: UNK, UNKNOWN
     Route: 065
  8. FURIX [Concomitant]
     Dosage: 40 MG, UNKNOWN
     Route: 065
  9. OXASCAND [Concomitant]
     Dosage: UNK, UNKNOWN
     Route: 065
  10. EMCONCOR /00802601/ [Concomitant]
     Dosage: UNK, UNKNOWN
     Route: 065
  11. MONOKET [Concomitant]
     Dosage: UNK, DAILY (1/D)
     Route: 065
  12. IMOVANE [Concomitant]
     Dosage: UNK, UNKNOWN
     Route: 065
  13. MOVICOL /01053601/ [Concomitant]
     Dosage: UNK, UNKNOWN
     Route: 065

REACTIONS (2)
  - DRUG INTERACTION [None]
  - HAEMORRHAGE [None]
